FAERS Safety Report 9552089 (Version 1)
Quarter: 2013Q3

REPORT INFORMATION
  Report Type: Report from Study
  Country: CA (occurrence: CA)
  Receive Date: 20130925
  Receipt Date: 20130925
  Transmission Date: 20140515
  Serious: Yes (Other)
  Sender: FDA-Public Use
  Company Number: CA-CELGENEUS-028-21660-13092071

PATIENT
  Sex: 0

DRUGS (10)
  1. DEXAMETHASONE [Concomitant]
     Indication: PRODUCT USED FOR UNKNOWN INDICATION
     Dosage: 8 MILLIGRAM
     Route: 030
  2. ABRAXANE [Suspect]
     Indication: NEOPLASM
     Dosage: 180 MILLIGRAM/SQ. METER
     Route: 041
  3. ABRAXANE [Suspect]
     Dosage: 220 MILLIGRAM/SQ. METER
     Route: 041
  4. ABRAXANE [Suspect]
     Dosage: 260 MILLIGRAM/SQ. METER
     Route: 041
  5. ABRAXANE [Suspect]
     Dosage: 140 MILLIGRAM/SQ. METER
     Route: 041
  6. PEMETREXED [Suspect]
     Indication: NEOPLASM
     Route: 041
  7. PEMETREXED [Suspect]
     Route: 041
  8. PEMETREXED [Suspect]
     Route: 041
  9. FOLIC ACID [Concomitant]
     Indication: PRODUCT USED FOR UNKNOWN INDICATION
     Dosage: 350-1000 MCG
     Route: 065
  10. VITAMIN B12 [Concomitant]
     Indication: PRODUCT USED FOR UNKNOWN INDICATION
     Dosage: 1,000 MCG
     Route: 030

REACTIONS (13)
  - Hypoalbuminaemia [Unknown]
  - Myocardial ischaemia [Unknown]
  - Transaminases increased [Unknown]
  - Cellulitis [Unknown]
  - Lymphopenia [Unknown]
  - Leukopenia [Unknown]
  - Anaemia [Unknown]
  - Neutropenia [Unknown]
  - Fatigue [Unknown]
  - Hypersensitivity [Unknown]
  - Peripheral sensory neuropathy [Unknown]
  - Vomiting [Unknown]
  - Disease progression [Unknown]
